FAERS Safety Report 9374661 (Version 1)
Quarter: 2013Q2

REPORT INFORMATION
  Report Type: Spontaneous
  Country: FR (occurrence: None)
  Receive Date: 20130624
  Receipt Date: 20130624
  Transmission Date: 20140414
  Serious: No
  Sender: FDA-Public Use
  Company Number: LTI2013A00108

PATIENT
  Age: 62 Year
  Sex: Female

DRUGS (13)
  1. OGAST [Suspect]
     Indication: PRODUCT USED FOR UNKNOWN INDICATION
     Route: 048
  2. SERETIDE (FLUTICASONE PROPIONATE, SALMETEROL XINAFOATE) [Suspect]
     Route: 055
     Dates: start: 2008, end: 20130423
  3. TAHOR [Suspect]
     Indication: PRODUCT USED FOR UNKNOWN INDICATION
  4. PLAVIX [Suspect]
     Indication: PRODUCT USED FOR UNKNOWN INDICATION
     Route: 048
  5. SPIRIVA [Suspect]
     Indication: PRODUCT USED FOR UNKNOWN INDICATION
     Route: 055
  6. SINGULAIR [Suspect]
     Indication: PRODUCT USED FOR UNKNOWN INDICATION
     Route: 048
  7. ISOPTINE [Suspect]
     Indication: PRODUCT USED FOR UNKNOWN INDICATION
     Route: 048
  8. ONGLYZA [Suspect]
     Route: 048
     Dates: start: 201301, end: 20130423
  9. COAPROVEL [Concomitant]
  10. LASILIX [Concomitant]
  11. CORVASAL [Concomitant]
  12. METFORMINE [Concomitant]
  13. VENTOLINE [Concomitant]

REACTIONS (4)
  - Hypogammaglobulinaemia [None]
  - Lung infection [None]
  - Cushing^s syndrome [None]
  - Drug interaction [None]
